FAERS Safety Report 11131422 (Version 1)
Quarter: 2015Q2

REPORT INFORMATION
  Report Type: Spontaneous
  Country: JP (occurrence: JP)
  Receive Date: 20150522
  Receipt Date: 20150522
  Transmission Date: 20150821
  Serious: Yes (Death)
  Sender: FDA-Public Use
  Company Number: JP-DSJP-DSJ-2015-115794

PATIENT

DRUGS (2)
  1. LIXIANA TABLETS [Suspect]
     Active Substance: EDOXABAN TOSILATE MONOHYDRATE
     Indication: HIP ARTHROPLASTY
     Dosage: UNK
     Route: 065
  2. LOXONIN [Concomitant]
     Active Substance: LOXOPROFEN SODIUM

REACTIONS (1)
  - Pulmonary embolism [Fatal]
